FAERS Safety Report 14823733 (Version 3)
Quarter: 2018Q2

REPORT INFORMATION
  Report Type: Spontaneous
  Country: ES (occurrence: ES)
  Receive Date: 20180428
  Receipt Date: 20180531
  Transmission Date: 20180711
  Serious: Yes (Death, Hospitalization, Other)
  Sender: FDA-Public Use
  Company Number: ES-AUROBINDO-AUR-APL-2018-022904

PATIENT
  Age: 62 Year
  Sex: Male

DRUGS (25)
  1. QUETIAPINE. [Suspect]
     Active Substance: QUETIAPINE
     Indication: MAJOR DEPRESSION
     Dosage: UNK
     Route: 065
  2. LEVOTHYROXINE. [Suspect]
     Active Substance: LEVOTHYROXINE
     Dosage: 100-200 MG.
     Route: 065
  3. LORATADINA [Interacting]
     Active Substance: LORATADINE
     Dosage: 1-0-0-0
     Route: 065
  4. FLUTICASONE W/SALMETEROL [Suspect]
     Active Substance: FLUTICASONE PROPIONATE\SALMETEROL XINAFOATE
     Dosage: DAILY
     Route: 065
  5. QUETIAPINE. [Suspect]
     Active Substance: QUETIAPINE
     Indication: SCHIZOPHRENIA
     Dosage: 3600 MILLIGRAM, ONCE A DAY, 400 TO 800 MG/DAY
     Route: 065
  6. HALOPERIDOL. [Suspect]
     Active Substance: HALOPERIDOL
     Indication: PSYCHOTIC DISORDER
     Dosage: 45 MG, PER DAY
     Route: 065
  7. CLONAZEPAM. [Suspect]
     Active Substance: CLONAZEPAM
     Dosage: 0.5 MG, 4X PER DAY
     Route: 065
  8. LORATADINA [Interacting]
     Active Substance: LORATADINE
     Dosage: 10 MILLIGRAM
     Route: 065
  9. HALOPERIDOL. [Suspect]
     Active Substance: HALOPERIDOL
     Indication: NERVOUS SYSTEM DISORDER
     Dosage: 45 MILLIGRAM, ONCE A DAY, 10-20 MG
     Route: 065
  10. QUETIAPINE. [Suspect]
     Active Substance: QUETIAPINE
     Dosage: UNK
     Route: 065
  11. METFORMIN [Suspect]
     Active Substance: METFORMIN HYDROCHLORIDE
     Dosage: 3400 MG, PER DAY
     Route: 048
  12. CLONAZEPAM. [Suspect]
     Active Substance: CLONAZEPAM
     Indication: EPILEPSY
     Dosage: 8 MILLIGRAM, ONCE A DAY
     Route: 065
  13. VALPROIC ACID. [Suspect]
     Active Substance: VALPROIC ACID
     Indication: EPILEPSY
     Dosage: 4500 MILLIGRAM, ONCE A DAY
     Route: 065
  14. VALPROIC ACID. [Suspect]
     Active Substance: VALPROIC ACID
     Indication: MANIA
     Dosage: 1500 MG, 3X PER DAY
     Route: 065
  15. HALOPERIDOL. [Suspect]
     Active Substance: HALOPERIDOL
     Dosage: UNK
     Route: 065
  16. METFORMIN [Suspect]
     Active Substance: METFORMIN HYDROCHLORIDE
     Indication: TYPE 2 DIABETES MELLITUS
     Dosage: 3400 MILLIGRAM, ONCE A DAY, 3 G/DAY
     Route: 048
  17. TIOTROPIO [Suspect]
     Active Substance: TIOTROPIUM BROMIDE
     Indication: CHRONIC OBSTRUCTIVE PULMONARY DISEASE
     Dosage: 5 MICROGRAM, ONCE A DAY, 2 PUFFS
     Route: 065
  18. TIOTROPIO [Suspect]
     Active Substance: TIOTROPIUM BROMIDE
     Dosage: 2 PUFFS
     Route: 065
  19. FLUTICASONE W/SALMETEROL [Suspect]
     Active Substance: FLUTICASONE PROPIONATE\SALMETEROL XINAFOATE
     Indication: ASTHMA
     Dosage: UNK, 2 PUFFS
     Route: 065
  20. QUETIAPINA                         /01270901/ [Interacting]
     Active Substance: QUETIAPINE
     Indication: SCHIZOPHRENIA
     Dosage: 400 TO 800 MG/DAY
  21. QUETIAPINA                         /01270901/ [Interacting]
     Active Substance: QUETIAPINE
     Indication: MAJOR DEPRESSION
     Dosage: UNK
  22. LEVOTHYROXINE. [Suspect]
     Active Substance: LEVOTHYROXINE
     Indication: HYPOTHYROIDISM
     Dosage: 450 MICROGRAM, ONCE A DAY, 100-200 MG
     Route: 065
  23. TIOTROPIO [Suspect]
     Active Substance: TIOTROPIUM BROMIDE
     Dosage: 25 MG, 1X1
     Route: 065
  24. LORATADINA [Interacting]
     Active Substance: LORATADINE
     Indication: RHINITIS ALLERGIC
     Dosage: 10 MILLIGRAM, ONCE A DAY
     Route: 065
  25. HALOPERIDOL. [Suspect]
     Active Substance: HALOPERIDOL
     Dosage: 10-20 MG
     Route: 065

REACTIONS (7)
  - Drug interaction [Not Recovered/Not Resolved]
  - Ventricular fibrillation [Fatal]
  - Cardiac failure [Fatal]
  - Prescribed overdose [Fatal]
  - Off label use [Fatal]
  - Hyperprolactinaemia [Unknown]
  - Coma [Unknown]
